FAERS Safety Report 16035863 (Version 2)
Quarter: 2019Q1

REPORT INFORMATION
  Report Type: Spontaneous
  Country: FR (occurrence: FR)
  Receive Date: 20190305
  Receipt Date: 20190306
  Transmission Date: 20190418
  Serious: Yes (Other)
  Sender: FDA-Public Use
  Company Number: FR-PFIZER INC-2019091512

PATIENT
  Age: 73 Year
  Sex: Male
  Weight: 63 kg

DRUGS (1)
  1. MERONEM [Suspect]
     Active Substance: MEROPENEM
     Dosage: UNK

REACTIONS (2)
  - Toxic encephalopathy [Unknown]
  - Drug hypersensitivity [Unknown]
